FAERS Safety Report 13079962 (Version 1)
Quarter: 2017Q1

REPORT INFORMATION
  Report Type: Spontaneous
  Country: PL (occurrence: PL)
  Receive Date: 20170103
  Receipt Date: 20170103
  Transmission Date: 20170428
  Serious: Yes (Other)
  Sender: FDA-Public Use
  Company Number: PL-BAYER-2016-243768

PATIENT
  Age: 54 Year
  Sex: Female

DRUGS (5)
  1. IBUPROFEN. [Interacting]
     Active Substance: IBUPROFEN
     Dosage: UNK
  2. KETOPROFEN (SYSTEMIC FORMULATION) [Interacting]
     Active Substance: KETOPROFEN
     Dosage: UNK
  3. DICLOFENAC [Interacting]
     Active Substance: DICLOFENAC
     Dosage: UNK
  4. TRAMADOL. [Suspect]
     Active Substance: TRAMADOL
     Dosage: UNK
  5. ASPIRIN. [Suspect]
     Active Substance: ASPIRIN
     Dosage: UNK

REACTIONS (6)
  - Labelled drug-drug interaction medication error [None]
  - Intentional overdose [None]
  - Gastritis [None]
  - Gastric ulcer [None]
  - Suicide attempt [None]
  - Gastrointestinal mucosal necrosis [None]
